FAERS Safety Report 10395685 (Version 1)
Quarter: 2014Q1

REPORT INFORMATION
  Report Type: Spontaneous
  Country: US (occurrence: None)
  Receive Date: 20130724
  Receipt Date: 20130724
  Transmission Date: 20141002
  Serious: Yes (Other)
  Sender: FDA-Public Use
  Company Number: PHEH2012US004530

PATIENT
  Age: 82 Year
  Sex: Female

DRUGS (1)
  1. GLEEVEC (IMATINIB) UNKNOWN [Suspect]
     Indication: CHRONIC MYELOID LEUKAEMIA
     Dates: start: 201003

REACTIONS (13)
  - Haemoglobin decreased [None]
  - Feeling cold [None]
  - Visual impairment [None]
  - Haematochezia [None]
  - Anaemia [None]
  - Dizziness [None]
  - Diarrhoea [None]
  - Pyrexia [None]
  - Chills [None]
  - Swelling [None]
  - Eye swelling [None]
  - Oedema peripheral [None]
  - Gastrointestinal haemorrhage [None]
